FAERS Safety Report 17419966 (Version 4)
Quarter: 2020Q2

REPORT INFORMATION
  Report Type: Spontaneous
  Country: US (occurrence: US)
  Receive Date: 20200214
  Receipt Date: 20200526
  Transmission Date: 20200713
  Serious: No
  Sender: FDA-Public Use
  Company Number: US-PFIZER INC-2020062927

PATIENT
  Age: 63 Year
  Sex: Male

DRUGS (2)
  1. XELJANZ XR [Suspect]
     Active Substance: TOFACITINIB CITRATE
     Dosage: 11 MG, UNK
     Dates: start: 20190403, end: 2019
  2. XELJANZ XR [Suspect]
     Active Substance: TOFACITINIB CITRATE
     Dosage: 11 MG, UNK
     Dates: start: 20190910

REACTIONS (7)
  - Rheumatic disorder [Unknown]
  - Taste disorder [Unknown]
  - Influenza [Recovering/Resolving]
  - Malaise [Unknown]
  - Drug ineffective [Unknown]
  - Intentional dose omission [Unknown]
  - Nasopharyngitis [Recovering/Resolving]
